FAERS Safety Report 9765771 (Version 1)
Quarter: 2013Q4

REPORT INFORMATION
  Report Type: Spontaneous
  Country: US (occurrence: US)
  Receive Date: 20131217
  Receipt Date: 20131217
  Transmission Date: 20140711
  Serious: No
  Sender: FDA-Public Use
  Company Number: US-GLAXOSMITHKLINE-A1011451A

PATIENT
  Age: 81 Year
  Sex: Male

DRUGS (2)
  1. VOTRIENT [Suspect]
     Indication: RENAL CELL CARCINOMA
     Dosage: 200MG THREE TIMES PER DAY
     Route: 048
     Dates: start: 20130114
  2. NO CONCURRENT MEDICATION [Concomitant]

REACTIONS (4)
  - Epistaxis [Recovered/Resolved]
  - Gastric disorder [Unknown]
  - Abdominal discomfort [Unknown]
  - Haemorrhoids [Unknown]
